FAERS Safety Report 4616685-0 (Version None)
Quarter: 2005Q1

REPORT INFORMATION
  Report Type: 
  Country: None (occurrence: None)
  Receive Date: 20050321
  Receipt Date: 20050308
  Transmission Date: 20050727
  Serious: Yes (Other)
  Sender: FDA-Public Use
  Company Number: 2004057181

PATIENT
  Age: 32 Year
  Sex: Female
  Weight: 51.5 kg

DRUGS (1)
  1. ZITHROMAX [Suspect]
     Indication: CHLAMYDIAL INFECTION
     Dosage: 1000 MG (1000 MG, 1 D), ORAL
     Route: 048
     Dates: start: 20040804, end: 20040804

REACTIONS (5)
  - CAESAREAN SECTION [None]
  - DIARRHOEA [None]
  - DRUG EXPOSURE DURING PREGNANCY [None]
  - TWIN PREGNANCY [None]
  - VOMITING [None]
